FAERS Safety Report 19880525 (Version 3)
Quarter: 2021Q4

REPORT INFORMATION
  Report Type: Spontaneous
  Country: BR (occurrence: BR)
  Receive Date: 20210924
  Receipt Date: 20211001
  Transmission Date: 20220303
  Serious: Yes (Hospitalization, Other)
  Sender: FDA-Public Use
  Company Number: BR-PFIZER INC-202101240713

PATIENT
  Age: 23 Year
  Sex: Female

DRUGS (1)
  1. SERTRALINE HYDROCHLORIDE [Suspect]
     Active Substance: SERTRALINE HYDROCHLORIDE
     Indication: Anxiety disorder
     Dosage: 150 MG
     Route: 048

REACTIONS (3)
  - Reversible cerebral vasoconstriction syndrome [Recovered/Resolved]
  - Vasospasm [Recovered/Resolved]
  - Condition aggravated [Recovered/Resolved]
